FAERS Safety Report 7557679-5 (Version None)
Quarter: 2011Q2

REPORT INFORMATION
  Report Type: 
  Country: None (occurrence: None)
  Receive Date: 20110620
  Receipt Date: 20110609
  Transmission Date: 20111010
  Serious: Yes (Other)
  Sender: FDA-Public Use
  Company Number: US-ASTRAZENECA-2011SE35306

PATIENT
  Age: 85 Year
  Sex: Male

DRUGS (1)
  1. NEXIUM [Suspect]
     Route: 048
     Dates: start: 20110201

REACTIONS (6)
  - AGITATION [None]
  - PERSONALITY CHANGE [None]
  - CHOKING [None]
  - LOSS OF CONSCIOUSNESS [None]
  - AGGRESSION [None]
  - PHYSICAL ASSAULT [None]
